FAERS Safety Report 16326208 (Version 1)
Quarter: 2019Q2

REPORT INFORMATION
  Report Type: Report from Study
  Country: ES (occurrence: ES)
  Receive Date: 20190517
  Receipt Date: 20190517
  Transmission Date: 20190711
  Serious: Yes (Life-Threatening, Hospitalization)
  Sender: FDA-Public Use
  Company Number: ES-TEVA-2019-ES-1050232

PATIENT
  Age: 90 Year
  Sex: Female

DRUGS (6)
  1. PREDNISONA (886A) [Suspect]
     Active Substance: PREDNISONE
     Indication: BRONCHOSPASM
     Route: 048
     Dates: start: 20190107, end: 20190111
  2. ACETILSALICILICO ACIDO (176A) [Interacting]
     Active Substance: ASPIRIN
     Indication: THROMBOSIS PROPHYLAXIS
     Route: 048
     Dates: start: 20180910
  3. TROMALYT [Interacting]
     Active Substance: ASPIRIN
     Indication: THROMBOSIS PROPHYLAXIS
     Route: 048
     Dates: end: 20180909
  4. AUGMENTINE [AMOXICILLIN;CLAVULANIC ACID] [Interacting]
     Active Substance: AMOXICILLIN\CLAVULANIC ACID
     Indication: BRONCHITIS
     Route: 048
     Dates: start: 20190108, end: 20190114
  5. IVABRADINA (2992A) [Concomitant]
     Active Substance: IVABRADINE
     Indication: HYPERTENSION
     Route: 048
     Dates: start: 20180105
  6. LOSARTAN (7157A) [Concomitant]
     Active Substance: LOSARTAN
     Indication: HYPERTENSION
     Route: 048
     Dates: start: 20170420

REACTIONS (2)
  - Drug interaction [Unknown]
  - Upper gastrointestinal haemorrhage [Recovered/Resolved]

NARRATIVE: CASE EVENT DATE: 20190110
